FAERS Safety Report 10671014 (Version 7)
Quarter: 2017Q2

REPORT INFORMATION
  Report Type: Report from Study
  Country: US (occurrence: US)
  Receive Date: 20141223
  Receipt Date: 20170427
  Transmission Date: 20170829
  Serious: Yes (Hospitalization)
  Sender: FDA-Public Use
  Company Number: US-EISAI MEDICAL RESEARCH-EC-2014-002099

PATIENT
  Age: 70 Year
  Sex: Female
  Weight: 112.5 kg

DRUGS (23)
  1. ASPIRIN. [Concomitant]
     Active Substance: ASPIRIN
  2. LOPAMIDOL [Concomitant]
  3. VITAMIN D3 [Concomitant]
     Active Substance: CHOLECALCIFEROL
  4. MYRBETRIQ [Concomitant]
     Active Substance: MIRABEGRON
  5. HYDROMORPHONE HCI [Concomitant]
  6. FERGON [Concomitant]
     Active Substance: FERROUS GLUCONATE
  7. CITRACAL PLUS VITAMIN D [Concomitant]
  8. HYDROCHLOROTHIAZIDE. [Concomitant]
     Active Substance: HYDROCHLOROTHIAZIDE
  9. ACETAMINOPHEN. [Concomitant]
     Active Substance: ACETAMINOPHEN
  10. BIOTIN [Concomitant]
     Active Substance: BIOTIN
  11. GABAPENTIN. [Concomitant]
     Active Substance: GABAPENTIN
  12. ONDANSETRON [Concomitant]
     Active Substance: ONDANSETRON
  13. METFORMIN [Concomitant]
     Active Substance: METFORMIN HYDROCHLORIDE
  14. LORCASERIN [Suspect]
     Active Substance: LORCASERIN HYDROCHLORIDE
     Indication: WEIGHT DECREASED
     Route: 048
     Dates: start: 20140908
  15. MUTLIVITAMIN [Concomitant]
  16. GLUCOSAMINE [Concomitant]
     Active Substance: GLUCOSAMINE
  17. FISH OIL [Concomitant]
     Active Substance: FISH OIL
  18. COENZYME Q10 [Concomitant]
     Active Substance: UBIDECARENONE
  19. COZAAR [Concomitant]
     Active Substance: LOSARTAN POTASSIUM
  20. TRAMADOL. [Concomitant]
     Active Substance: TRAMADOL
  21. CRESTOR [Concomitant]
     Active Substance: ROSUVASTATIN CALCIUM
  22. TRETINOIN TOPICAL [Concomitant]
  23. SODIUM CHLORIDE. [Concomitant]
     Active Substance: SODIUM CHLORIDE

REACTIONS (3)
  - Abdominal pain upper [Recovered/Resolved]
  - Splenic rupture [Recovered/Resolved]
  - Pleural effusion [Recovered/Resolved]

NARRATIVE: CASE EVENT DATE: 20141129
